FAERS Safety Report 8768338 (Version 2)
Quarter: 2012Q4

REPORT INFORMATION
  Report Type: 
  Country: US (occurrence: US)
  Receive Date: 20120914
  Receipt Date: 20120928
  Transmission Date: 20130627
  Serious: Yes (Hospitalization)
  Sender: FDA-Public Use
  Company Number: US-009507513-1209USA000537

PATIENT

DRUGS (19)
  1. RIBAVIRIN [Suspect]
     Indication: HEPATITIS C
     Dosage: 600 mg, bid
     Route: 048
     Dates: start: 20120808, end: 20120830
  2. PEGINTERFERON ALFA-2B [Suspect]
     Indication: HEPATITIS INFECTIOUS
     Dosage: 150 Microgram, qw
     Route: 058
     Dates: start: 20120808, end: 20120827
  3. K-RALA [Concomitant]
     Indication: HIV INFECTION
     Dosage: 400 mg, bid
     Route: 048
     Dates: start: 201205
  4. FTC [Concomitant]
     Indication: HIV INFECTION
     Dosage: 1 UNK, UNK
     Route: 048
     Dates: start: 201107
  5. TENOFOVIR DISOPROXIL FUMARATE [Concomitant]
     Indication: HIV INFECTION
     Dosage: 1 UNK, UNK
     Route: 048
     Dates: start: 201107
  6. MORPHINE SULFATE [Concomitant]
     Indication: ARTHRITIS
     Dosage: 60 mg, bid
     Route: 048
     Dates: start: 2010
  7. NORCO [Concomitant]
     Indication: ARTHRITIS
     Dosage: 4-6 TABLET
     Route: 048
     Dates: start: 2002
  8. DOXYCYCLINE [Concomitant]
     Indication: ROSACEA
     Dosage: 100 mg, UNK
     Route: 048
     Dates: start: 2007
  9. PRILOSEC [Concomitant]
     Indication: GASTROOESOPHAGEAL REFLUX DISEASE
     Dosage: 20 mg, UNK
     Route: 048
     Dates: start: 201107
  10. MAXIDE [Concomitant]
     Indication: HYPERTENSION
     Dosage: 1 UNK, UNK
     Route: 048
     Dates: start: 2007
  11. COMPAZINE [Concomitant]
     Indication: NAUSEA
     Dosage: 10 mg, bid
     Route: 048
     Dates: start: 201107
  12. ELAVIL [Concomitant]
     Indication: HEADACHE
     Dosage: 50 mg, hs
     Route: 048
     Dates: start: 2009
  13. TOPAMAX [Concomitant]
     Indication: DIZZINESS
     Dosage: 100 mg, UNK
     Route: 048
     Dates: start: 201107
  14. TOPAMAX [Concomitant]
     Indication: HEADACHE
  15. XANAX [Concomitant]
     Indication: ANXIETY
     Dosage: 0.5-1 mg
     Route: 048
     Dates: start: 2002
  16. COLACE [Concomitant]
     Indication: CONSTIPATION
     Dosage: 1 DF, UNK
     Route: 048
     Dates: start: 201107
  17. LISINOPRIL [Concomitant]
     Indication: HYPERTENSION
     Dosage: 10 mg, UNK
     Route: 048
     Dates: start: 2007
  18. METFORMIN [Concomitant]
     Indication: DIABETES MELLITUS
     Dosage: 500 mg, UNK
     Route: 048
     Dates: start: 201109
  19. LASIX (FUROSEMIDE SODIUM) [Concomitant]
     Indication: SWELLING
     Dosage: 20 mg, qd
     Route: 048
     Dates: start: 201101, end: 20120715

REACTIONS (1)
  - Sepsis [Recovered/Resolved]
